FAERS Safety Report 6759809-1 (Version None)
Quarter: 2010Q2

REPORT INFORMATION
  Report Type: 
  Country: None (occurrence: None)
  Receive Date: 20100608
  Receipt Date: 20100522
  Transmission Date: 20101027
  Serious: Yes (Death, Other)
  Sender: FDA-Public Use
  Company Number: US-BAYER-201026386GPV

PATIENT
  Age: 63 Year
  Sex: Female

DRUGS (8)
  1. FLUDARABINE [Suspect]
     Indication: STEM CELL TRANSPLANT
     Dosage: FIVE DOSES
     Route: 042
  2. MELPHALAN HYDROCHLORIDE [Suspect]
     Indication: MYCOSIS FUNGOIDES
     Dosage: 2 DOSES
  3. ANTI-THYMOCYTE GLOBULIN NOS [Suspect]
     Indication: MYCOSIS FUNGOIDES
  4. MINI METHOTREXATE [Concomitant]
     Indication: PROPHYLAXIS AGAINST GRAFT VERSUS HOST DISEASE
     Dosage: ON DAYS 1, 3, 6 AND 11
  5. MINI METHOTREXATE [Concomitant]
  6. TACROLIMUS [Concomitant]
     Indication: PROPHYLAXIS AGAINST GRAFT VERSUS HOST DISEASE
  7. TACROLIMUS [Concomitant]
     Dosage: ON DAYS 1, 3, 6 AND 11
  8. NEUPOGEN [Concomitant]
     Dosage: FROM DAY 7 UNTIL ENGRAFTMENT

REACTIONS (4)
  - BACTERIAL SEPSIS [None]
  - CANDIDIASIS [None]
  - RENAL TUBULAR NECROSIS [None]
  - SERUM SICKNESS [None]
